FAERS Safety Report 5133639-9 (Version None)
Quarter: 2006Q4

REPORT INFORMATION
  Report Type: 
  Country: None (occurrence: None)
  Receive Date: 20061024
  Receipt Date: 20040311
  Transmission Date: 20070319
  Serious: Yes (Hospitalization)
  Sender: FDA-Public Use
  Company Number: 200410880JP

PATIENT
  Age: 72 Year
  Sex: Male
  Weight: 42 kg

DRUGS (7)
  1. ARAVA [Suspect]
     Indication: RHEUMATOID ARTHRITIS
     Route: 048
     Dates: start: 20031217, end: 20031219
  2. ARAVA [Suspect]
     Route: 048
     Dates: start: 20031220, end: 20040210
  3. HABEKACIN                          /01069401/ [Suspect]
     Indication: PNEUMONIA STAPHYLOCOCCAL
     Route: 041
     Dates: start: 20040405, end: 20040407
  4. HABEKACIN                          /01069401/ [Suspect]
     Route: 041
     Dates: start: 20040408, end: 20040410
  5. HYPEN [Concomitant]
     Indication: RHEUMATOID ARTHRITIS
     Route: 048
  6. CYTOTEC [Concomitant]
     Indication: PROPHYLAXIS AGAINST GASTROINTESTINAL ULCER
     Route: 048
  7. PREDONINE                          /00016201/ [Concomitant]
     Indication: RHEUMATOID ARTHRITIS
     Route: 048

REACTIONS (7)
  - ALANINE AMINOTRANSFERASE INCREASED [None]
  - ASPARTATE AMINOTRANSFERASE INCREASED [None]
  - BLOOD ALKALINE PHOSPHATASE INCREASED [None]
  - BLOOD BILIRUBIN INCREASED [None]
  - PNEUMONIA STAPHYLOCOCCAL [None]
  - PRURITUS [None]
  - RENAL FAILURE ACUTE [None]
